FAERS Safety Report 9967552 (Version 2)
Quarter: 2014Q1

REPORT INFORMATION
  Report Type: Report from Study
  Country: PR (occurrence: PR)
  Receive Date: 20140305
  Receipt Date: 20140305
  Transmission Date: 20141002
  Serious: No
  Sender: FDA-Public Use
  Company Number: PR-ABBVIE-12P-131-0917411-00

PATIENT
  Age: 50 Year
  Sex: Female
  Weight: 95.34 kg

DRUGS (9)
  1. HUMIRA [Suspect]
     Indication: RHEUMATOID ARTHRITIS
     Route: 058
  2. HUMIRA [Suspect]
     Route: 058
     Dates: start: 201203, end: 201203
  3. ORENCIA [Concomitant]
     Indication: RHEUMATOID ARTHRITIS
     Route: 058
  4. NEURONTIN [Concomitant]
     Indication: PAIN
     Route: 048
  5. SYNTHROID [Concomitant]
     Indication: THYROID DISORDER
     Route: 048
  6. FOLIC ACID [Concomitant]
     Indication: VITAMIN SUPPLEMENTATION
     Route: 048
  7. FLEXERIL [Concomitant]
     Indication: PRODUCT USED FOR UNKNOWN INDICATION
     Dosage: 1 AT NIGHT
     Route: 048
  8. SAVELLA [Concomitant]
     Indication: FIBROMYALGIA
     Dosage: 100 MG DAILY
     Route: 048
  9. NAPROXEN [Concomitant]
     Indication: PAIN
     Route: 048

REACTIONS (2)
  - Hypersensitivity [Unknown]
  - Rash [Recovered/Resolved]
